FAERS Safety Report 24167720 (Version 1)
Quarter: 2024Q3

REPORT INFORMATION
  Report Type: Spontaneous
  Country: US (occurrence: None)
  Receive Date: 20240802
  Receipt Date: 20240802
  Transmission Date: 20241017
  Serious: Yes (Other)
  Sender: ASTRAZENECA
  Company Number: 2024A170615

PATIENT
  Age: 85 Year

DRUGS (1)
  1. TAGRISSO [Suspect]
     Active Substance: OSIMERTINIB
     Indication: Lung cancer metastatic
     Dosage: 80.0MG UNKNOWN
     Route: 048

REACTIONS (5)
  - Cardiac failure congestive [Unknown]
  - Quality of life decreased [Unknown]
  - Skin disorder [Unknown]
  - Visual impairment [Unknown]
  - Decubitus ulcer [Unknown]
